FAERS Safety Report 16761861 (Version 3)
Quarter: 2020Q4

REPORT INFORMATION
  Report Type: Spontaneous
  Country: US (occurrence: US)
  Receive Date: 20190830
  Receipt Date: 20201207
  Transmission Date: 20210113
  Serious: Yes (Other)
  Sender: FDA-Public Use
  Company Number: US-GILEAD-2019-0425672

PATIENT
  Age: 56 Year
  Sex: Male
  Weight: 82.54 kg

DRUGS (47)
  1. ATRIPLA [Suspect]
     Active Substance: EFAVIRENZ\EMTRICITABINE\TENOFOVIR DISOPROXIL FUMARATE
     Indication: HIV INFECTION
     Dosage: UNK
     Route: 048
     Dates: start: 200909, end: 201410
  2. TRIUMEQ [Concomitant]
     Active Substance: ABACAVIR SULFATE\DOLUTEGRAVIR SODIUM\LAMIVUDINE
  3. VIRAMUNE [Concomitant]
     Active Substance: NEVIRAPINE
  4. COREG [Concomitant]
     Active Substance: CARVEDILOL
  5. CATAPRES-TTS [Concomitant]
     Active Substance: CLONIDINE
  6. LIDODERM [Concomitant]
     Active Substance: LIDOCAINE
  7. PEG 3350 [Concomitant]
     Active Substance: POLYETHYLENE GLYCOL 3350
  8. LOVAZA [Concomitant]
     Active Substance: OMEGA-3-ACID ETHYL ESTERS
  9. LISINOPRIL. [Concomitant]
     Active Substance: LISINOPRIL
  10. ZIAC [Concomitant]
     Active Substance: BISOPROLOL FUMARATE\HYDROCHLOROTHIAZIDE
  11. VIREAD [Suspect]
     Active Substance: TENOFOVIR DISOPROXIL FUMARATE
     Indication: HIV INFECTION
     Dosage: UNK
     Route: 065
     Dates: start: 200604, end: 200909
  12. COMBIVIR [Concomitant]
     Active Substance: LAMIVUDINE\ZIDOVUDINE
  13. TIVICAY [Concomitant]
     Active Substance: DOLUTEGRAVIR SODIUM
  14. PROCARDIA [Concomitant]
     Active Substance: NIFEDIPINE
  15. NIFEDICAL XL [Concomitant]
     Active Substance: NIFEDIPINE
  16. FLONASE [Concomitant]
     Active Substance: FLUTICASONE PROPIONATE
  17. ROSUVASTATIN. [Concomitant]
     Active Substance: ROSUVASTATIN
  18. ZYLOPRIM [Concomitant]
     Active Substance: ALLOPURINOL
  19. DOLUTEGRAVIR [Concomitant]
     Active Substance: DOLUTEGRAVIR
  20. EXFORGE [Concomitant]
     Active Substance: AMLODIPINE BESYLATE\VALSARTAN
  21. RETROVIR [Concomitant]
     Active Substance: ZIDOVUDINE
  22. DRISDOL [Concomitant]
     Active Substance: ERGOCALCIFEROL
  23. METRONIDAZOLE. [Concomitant]
     Active Substance: METRONIDAZOLE
  24. TEGRETOL [Concomitant]
     Active Substance: CARBAMAZEPINE
  25. CARVEDILOL. [Concomitant]
     Active Substance: CARVEDILOL
  26. ABACAVIR. [Concomitant]
     Active Substance: ABACAVIR
  27. EPIVIR [Concomitant]
     Active Substance: LAMIVUDINE
  28. DIOVAN HCT [Concomitant]
     Active Substance: HYDROCHLOROTHIAZIDE\VALSARTAN
  29. ZOCOR [Concomitant]
     Active Substance: SIMVASTATIN
  30. ZIAGEN [Concomitant]
     Active Substance: ABACAVIR SULFATE
  31. PREDNISONE. [Concomitant]
     Active Substance: PREDNISONE
  32. LOFIBRA [FENOFIBRATE] [Concomitant]
  33. DILAUDID [Concomitant]
     Active Substance: HYDROMORPHONE HYDROCHLORIDE
  34. MUCINEX [Concomitant]
     Active Substance: GUAIFENESIN
  35. SUCRALFATE. [Concomitant]
     Active Substance: SUCRALFATE
  36. CRESTOR [Concomitant]
     Active Substance: ROSUVASTATIN CALCIUM
  37. MARINOL [ALLOPURINOL] [Concomitant]
     Active Substance: ALLOPURINOL
  38. CLONIDINE. [Concomitant]
     Active Substance: CLONIDINE
  39. BISACODYL EG [Concomitant]
  40. HYDROCHLOROTHIAZIDE. [Concomitant]
     Active Substance: HYDROCHLOROTHIAZIDE
  41. MARIJUANA [Concomitant]
     Active Substance: CANNABIS SATIVA SUBSP. INDICA TOP
  42. ZANTAC [Concomitant]
     Active Substance: RANITIDINE HYDROCHLORIDE
  43. VOLTAREN [DICLOFENAC] [Concomitant]
     Active Substance: DICLOFENAC SODIUM
  44. MITIGARE [Concomitant]
     Active Substance: COLCHICINE
  45. DIOVAN [Concomitant]
     Active Substance: VALSARTAN
  46. VALSARTAN + HCTZ [Concomitant]
     Active Substance: HYDROCHLOROTHIAZIDE\VALSARTAN
  47. LAMIVUDINE. [Concomitant]
     Active Substance: LAMIVUDINE

REACTIONS (7)
  - Economic problem [Not Recovered/Not Resolved]
  - Anhedonia [Not Recovered/Not Resolved]
  - Anxiety [Not Recovered/Not Resolved]
  - Chronic kidney disease [Not Recovered/Not Resolved]
  - Pain [Not Recovered/Not Resolved]
  - Multiple injuries [Unknown]
  - Emotional distress [Not Recovered/Not Resolved]

NARRATIVE: CASE EVENT DATE: 20140718
